FAERS Safety Report 5109348-9 (Version None)
Quarter: 2006Q3

REPORT INFORMATION
  Report Type: 
  Country: None (occurrence: None)
  Receive Date: 20060918
  Receipt Date: 20060906
  Transmission Date: 20061208
  Serious: Yes (Other)
  Sender: FDA-Public Use
  Company Number: CHPA2006US08912

PATIENT
  Age: 12 Year
  Sex: Male
  Weight: 52.2 kg

DRUGS (1)
  1. EXCEDRIN QUICKTAB (NCH) (ACETAMINOPHEN (PARACETAMOL), CAFFEINE) TABLET [Suspect]
     Indication: ARTHRALGIA
     Dosage: 2 DF, QD, ORAL
     Route: 048

REACTIONS (2)
  - DRUG ABUSER [None]
  - NO ADVERSE DRUG EFFECT [None]
